FAERS Safety Report 14454036 (Version 1)
Quarter: 2018Q1

REPORT INFORMATION
  Report Type: Spontaneous
  Country: US (occurrence: US)
  Receive Date: 20180129
  Receipt Date: 20180129
  Transmission Date: 20180509
  Serious: No
  Sender: FDA-Public Use
  Company Number: US-ALLERGAN-1752749US

PATIENT
  Age: 16 Year
  Sex: Female

DRUGS (1)
  1. FABIOR [Suspect]
     Active Substance: TAZAROTENE
     Indication: ACNE
     Dosage: UNK
     Route: 061
     Dates: start: 201706

REACTIONS (5)
  - Erythema [Unknown]
  - Skin irritation [Unknown]
  - Skin exfoliation [Unknown]
  - Skin burning sensation [Unknown]
  - Drug ineffective [Unknown]

NARRATIVE: CASE EVENT DATE: 201706
